FAERS Safety Report 8978129 (Version 1)
Quarter: 2012Q4

REPORT INFORMATION
  Report Type: 
  Country: DE (occurrence: DE)
  Receive Date: 20121220
  Receipt Date: 20121220
  Transmission Date: 20130627
  Serious: Yes (Hospitalization)
  Sender: FDA-Public Use
  Company Number: PHHO2012DE018079

PATIENT
  Age: 68 Year
  Sex: Male
  Weight: 65 kg

DRUGS (5)
  1. MYCOPHENOLATE MOFETIL [Suspect]
     Indication: RENAL TRANSPLANT
     Dosage: 1000 mg, BID
     Route: 048
     Dates: start: 20100216, end: 20100604
  2. MYCOPHENOLATE MOFETIL [Suspect]
     Dosage: 500 mg, BID
     Route: 048
     Dates: start: 20100629
  3. PREDNISOLONE [Suspect]
     Indication: RENAL TRANSPLANT
     Dosage: UNK
     Route: 048
  4. BASILIXIMAB [Suspect]
     Indication: RENAL TRANSPLANT
     Route: 048
  5. TACROLIMUS [Concomitant]
     Indication: RENAL TRANSPLANT
     Dosage: 11 mg, QD
     Route: 048
     Dates: start: 20100216

REACTIONS (2)
  - Cytomegalovirus infection [Recovered/Resolved]
  - Leukopenia [Recovered/Resolved]
